FAERS Safety Report 5470590-9 (Version None)
Quarter: 2007Q3

REPORT INFORMATION
  Report Type: 
  Country: None (occurrence: None)
  Receive Date: 20070928
  Receipt Date: 20070921
  Transmission Date: 20080115
  Serious: Yes (Other)
  Sender: FDA-Public Use
  Company Number: PHBS2007ES15812

PATIENT
  Age: 64 Year
  Sex: Female

DRUGS (3)
  1. ZOLEDRONIC ACID [Suspect]
     Indication: BONE PAIN
     Dosage: 4 MG EVERY 28 DAYS
     Route: 042
     Dates: start: 20041201
  2. AROMATASE INHIBITOR [Concomitant]
  3. ANALGESICS [Concomitant]

REACTIONS (4)
  - OSTEOLYSIS [None]
  - OSTEONECROSIS [None]
  - PAIN IN JAW [None]
  - SURGERY [None]
